FAERS Safety Report 14574279 (Version 2)
Quarter: 2018Q1

REPORT INFORMATION
  Report Type: Spontaneous
  Country: US (occurrence: US)
  Receive Date: 20180226
  Receipt Date: 20180226
  Transmission Date: 20180509
  Serious: Yes (Other)
  Sender: FDA-Public Use
  Company Number: US-GILEAD-2018-0322479

PATIENT
  Age: 88 Year
  Sex: Male

DRUGS (3)
  1. IMDUR [Concomitant]
     Active Substance: ISOSORBIDE MONONITRATE
  2. RANEXA [Suspect]
     Active Substance: RANOLAZINE
     Dosage: 100 MG, BID
     Route: 065
  3. RANEXA [Suspect]
     Active Substance: RANOLAZINE
     Indication: ANGINA PECTORIS
     Dosage: 100 MG, BID
     Route: 065
     Dates: start: 2013, end: 2017

REACTIONS (3)
  - Muscle spasms [Recovered/Resolved]
  - Diabetes mellitus [Not Recovered/Not Resolved]
  - Intentional product use issue [Recovered/Resolved]

NARRATIVE: CASE EVENT DATE: 201702
